FAERS Safety Report 13285909 (Version 5)
Quarter: 2017Q1

REPORT INFORMATION
  Report Type: Report from Study
  Country: US (occurrence: US)
  Receive Date: 20170302
  Receipt Date: 20170324
  Transmission Date: 20170428
  Serious: Yes (Hospitalization)
  Sender: FDA-Public Use
  Company Number: US-GILEAD-2017-0260150

PATIENT
  Age: 28 Year
  Sex: Female

DRUGS (3)
  1. ADEMPAS [Concomitant]
     Active Substance: RIOCIGUAT
  2. AMBRISENTAN [Suspect]
     Active Substance: AMBRISENTAN
     Indication: PRODUCT USED FOR UNKNOWN INDICATION
     Dosage: 10 MG, QD
     Route: 065
     Dates: start: 20090108
  3. REMODULIN [Concomitant]
     Active Substance: TREPROSTINIL

REACTIONS (10)
  - Oxygen saturation decreased [Unknown]
  - Asthenia [Unknown]
  - Food allergy [Unknown]
  - Dizziness [Unknown]
  - Dyspnoea [Recovered/Resolved]
  - Dyskinesia [Unknown]
  - Hyperhidrosis [Recovered/Resolved]
  - Visual impairment [Unknown]
  - Anxiety [Recovered/Resolved]
  - Swollen tongue [Unknown]
